FAERS Safety Report 12464563 (Version 2)
Quarter: 2016Q3

REPORT INFORMATION
  Report Type: Report from Study
  Country: IT (occurrence: IT)
  Receive Date: 20160614
  Receipt Date: 20160728
  Transmission Date: 20161109
  Serious: Yes (Death, Other)
  Sender: FDA-Public Use
  Company Number: IT-CELGENEUS-ITA-2016057220

PATIENT

DRUGS (2)
  1. ROMIDEPSIN [Suspect]
     Active Substance: ROMIDEPSIN
     Indication: PERIPHERAL T-CELL LYMPHOMA UNSPECIFIED
     Route: 041
  2. GEMCITABINE [Concomitant]
     Active Substance: GEMCITABINE\GEMCITABINE HYDROCHLORIDE
     Indication: PERIPHERAL T-CELL LYMPHOMA UNSPECIFIED
     Route: 041

REACTIONS (11)
  - Cardiac disorder [Unknown]
  - Transaminases increased [Unknown]
  - Anaemia [Unknown]
  - Febrile neutropenia [Unknown]
  - Vomiting [Unknown]
  - Peripheral T-cell lymphoma unspecified [Fatal]
  - Toxicity to various agents [Unknown]
  - Pyrexia [Unknown]
  - Neutropenia [Unknown]
  - Nausea [Unknown]
  - Thrombocytopenia [Unknown]
